FAERS Safety Report 22635908 (Version 1)
Quarter: 2023Q2

REPORT INFORMATION
  Report Type: Spontaneous
  Country: US (occurrence: None)
  Receive Date: 20230620
  Receipt Date: 20230620
  Transmission Date: 20230722
  Serious: No
  Sender: FDA-Public Use
  Company Number: None

PATIENT
  Sex: Female

DRUGS (2)
  1. XELODA [Suspect]
     Active Substance: CAPECITABINE
     Dosage: OTHER FREQUENCY : EVERY AM;?
     Route: 048
  2. XELODA [Suspect]
     Active Substance: CAPECITABINE
     Dosage: OTHER FREQUENCY : EVERY PM;?

REACTIONS (7)
  - Fatigue [None]
  - Nausea [None]
  - Vomiting [None]
  - Myalgia [None]
  - Neuropathy peripheral [None]
  - Palmar-plantar erythrodysaesthesia syndrome [None]
  - Hypertension [None]
